FAERS Safety Report 24006087 (Version 1)
Quarter: 2024Q2

REPORT INFORMATION
  Report Type: Spontaneous
  Country: US (occurrence: US)
  Receive Date: 20240624
  Receipt Date: 20240624
  Transmission Date: 20240716
  Serious: No
  Sender: FDA-Public Use
  Company Number: US-MYLANLABS-2024M1054284

PATIENT
  Age: 60 Year
  Sex: Male
  Weight: 79.38 kg

DRUGS (2)
  1. ATORVASTATIN CALCIUM [Suspect]
     Active Substance: ATORVASTATIN CALCIUM
     Indication: Blood cholesterol increased
     Dosage: 10 MILLIGRAM, QD
     Route: 065
     Dates: start: 202309
  2. PANTOPRAZOLE [Concomitant]
     Active Substance: PANTOPRAZOLE
     Indication: Gastritis
     Dosage: 40 MILLIGRAM, QD
     Route: 065

REACTIONS (7)
  - Gastritis [Unknown]
  - Liver function test increased [Unknown]
  - Blood glucose increased [Unknown]
  - Apolipoprotein increased [Unknown]
  - Haemoglobin increased [Unknown]
  - Blood potassium increased [Unknown]
  - Myalgia [Unknown]

NARRATIVE: CASE EVENT DATE: 20231201
